FAERS Safety Report 5073889-3 (Version None)
Quarter: 2006Q3

REPORT INFORMATION
  Report Type: 
  Country: None (occurrence: None)
  Receive Date: 20060808
  Receipt Date: 20060417
  Transmission Date: 20061208
  Serious: No
  Sender: FDA-Public Use
  Company Number: US-AMGEN-US176499

PATIENT
  Sex: Male

DRUGS (9)
  1. EPOGEN [Suspect]
     Indication: RENAL FAILURE CHRONIC
     Route: 058
     Dates: start: 20030901
  2. EPOGEN [Suspect]
     Route: 058
     Dates: start: 20040507, end: 20050809
  3. EPOGEN [Suspect]
     Route: 058
     Dates: start: 20040119, end: 20040507
  4. EPOGEN [Suspect]
     Route: 058
     Dates: start: 20030901, end: 20040119
  5. SODIUM BICARBONATE [Concomitant]
     Dates: start: 20050617
  6. HECTORAL [Concomitant]
     Dates: start: 20050331
  7. K-DUR 10 [Concomitant]
     Dates: start: 20020624
  8. RENAGEL [Concomitant]
     Dates: start: 20010919
  9. NEPHRO-CAPS [Concomitant]
     Dates: start: 20010924

REACTIONS (1)
  - THERAPEUTIC RESPONSE DECREASED [None]
